FAERS Safety Report 4712772-7 (Version None)
Quarter: 2005Q3

REPORT INFORMATION
  Report Type: 
  Country: None (occurrence: None)
  Receive Date: 20050701
  Receipt Date: 20041229
  Transmission Date: 20060218
  Serious: Yes (Other)
  Sender: FDA-Public Use
  Company Number: 2004088900

PATIENT
  Sex: Female

DRUGS (2)
  1. ZOLOFT [Suspect]
     Indication: ANXIETY
     Route: 065
     Dates: start: 20010101
  2. HYDROCHLOROTHIAZIDE [Concomitant]

REACTIONS (1)
  - HYPONATRAEMIA [None]
